FAERS Safety Report 5449512-2 (Version None)
Quarter: 2007Q3

REPORT INFORMATION
  Report Type: 
  Country: None (occurrence: None)
  Receive Date: 20070907
  Receipt Date: 20070831
  Transmission Date: 20080115
  Serious: Yes (Other)
  Sender: FDA-Public Use
  Company Number: CHPA2007US09301

PATIENT
  Age: 80 Year
  Sex: Male

DRUGS (2)
  1. GAS-X EXTRA STRENGTH SOFTGELS (NCH) (SIMETHICONE) SOFT GELATIN CAPSULE [Suspect]
     Indication: FLATULENCE
     Dosage: 125 MG, ONCE/SINGLE, ORAL
     Route: 048
     Dates: start: 20070828, end: 20070828
  2. ANTIHYPERTENSIVE DRUGS [Concomitant]

REACTIONS (2)
  - BLOOD PRESSURE FLUCTUATION [None]
  - HYPERTENSION [None]
